FAERS Safety Report 7375522-4 (Version None)
Quarter: 2011Q1

REPORT INFORMATION
  Report Type: 
  Country: None (occurrence: None)
  Receive Date: 20110325
  Receipt Date: 20110311
  Transmission Date: 20110831
  Serious: Yes (Hospitalization)
  Sender: FDA-Public Use
  Company Number: CA-JNJFOC-20110306770

PATIENT
  Age: 63 Year

DRUGS (3)
  1. UNSPECIFIED BLOOD PRESSURE MEDS [Concomitant]
  2. CELEBREX [Suspect]
     Indication: PRODUCT USED FOR UNKNOWN INDICATION
  3. REMICADE [Suspect]
     Indication: PRODUCT USED FOR UNKNOWN INDICATION
     Route: 042

REACTIONS (2)
  - RENAL FAILURE ACUTE [None]
  - PNEUMONIA [None]
